FAERS Safety Report 21232226 (Version 3)
Quarter: 2022Q3

REPORT INFORMATION
  Report Type: Spontaneous
  Country: US (occurrence: US)
  Receive Date: 20220819
  Receipt Date: 20220929
  Transmission Date: 20221027
  Serious: No
  Sender: FDA-Public Use
  Company Number: US-BIOGEN-2022BI01143308

PATIENT
  Age: 47 Year
  Sex: Female

DRUGS (1)
  1. TYSABRI [Suspect]
     Active Substance: NATALIZUMAB
     Indication: Multiple sclerosis
     Route: 050
     Dates: start: 20130312

REACTIONS (8)
  - Inappropriate schedule of product administration [Recovered/Resolved]
  - Feeling abnormal [Not Recovered/Not Resolved]
  - Multiple sclerosis pseudo relapse [Not Recovered/Not Resolved]
  - Multiple sclerosis [Not Recovered/Not Resolved]
  - Irritability [Not Recovered/Not Resolved]
  - Stress [Not Recovered/Not Resolved]
  - Pain [Unknown]
  - Asthenia [Recovered/Resolved]

NARRATIVE: CASE EVENT DATE: 20220701
